FAERS Safety Report 17237832 (Version 2)
Quarter: 2020Q1

REPORT INFORMATION
  Report Type: Spontaneous
  Country: BE (occurrence: BE)
  Receive Date: 20200106
  Receipt Date: 20200113
  Transmission Date: 20200409
  Serious: Yes (Death, Life-Threatening, Other)
  Sender: FDA-Public Use
  Company Number: BE-MYLANLABS-2020M1001374

PATIENT
  Age: 31 Year
  Sex: Female

DRUGS (21)
  1. LASIX [Suspect]
     Active Substance: FUROSEMIDE
     Indication: PRODUCT USED FOR UNKNOWN INDICATION
     Dosage: SEVERAL TIMES A DAY BASED ON WEIGHT.
     Route: 042
     Dates: start: 20190328, end: 20190402
  2. ALBUMINE HUMAINE [Suspect]
     Active Substance: ALBUMIN HUMAN
     Indication: PRODUCT USED FOR UNKNOWN INDICATION
     Dosage: UNK
     Route: 042
     Dates: start: 20190325, end: 20190402
  3. GLUCOSE [Concomitant]
     Active Substance: DEXTROSE
     Dosage: UNK
     Route: 042
     Dates: start: 20190325, end: 20190402
  4. LYSOMUCIL [Concomitant]
     Active Substance: ACETYLCYSTEINE
     Dosage: UNK
     Route: 042
     Dates: start: 20190323, end: 20190402
  5. NIMBEX [Suspect]
     Active Substance: CISATRACURIUM BESYLATE
     Indication: PRODUCT USED FOR UNKNOWN INDICATION
     Dosage: UNK
     Route: 042
     Dates: start: 20190402
  6. DIPIDOLOR [Suspect]
     Active Substance: PIRITRAMIDE
     Indication: PRODUCT USED FOR UNKNOWN INDICATION
     Dosage: UNK
     Route: 042
     Dates: start: 20190325, end: 20190402
  7. LEVOPHED [Concomitant]
     Active Substance: NOREPINEPHRINE BITARTRATE
     Dosage: UNK
     Route: 008
     Dates: start: 20190325, end: 20190402
  8. ACTRAPID [Concomitant]
     Active Substance: INSULIN HUMAN
     Dosage: UNK
     Route: 042
     Dates: start: 20190325, end: 20190402
  9. DIPRIVAN [Concomitant]
     Active Substance: PROPOFOL
     Dosage: UNK
     Route: 042
     Dates: start: 20190325, end: 20190402
  10. SOLU-CORTEF [Concomitant]
     Active Substance: HYDROCORTISONE SODIUM SUCCINATE
     Route: 042
     Dates: start: 20190325, end: 20190402
  11. AACIDEXAM                          /00016001/ [Concomitant]
     Dosage: UNK
     Route: 042
     Dates: start: 20190325, end: 20190402
  12. MANNITOL. [Suspect]
     Active Substance: MANNITOL
     Indication: PRODUCT USED FOR UNKNOWN INDICATION
     Dosage: UNK
     Route: 042
     Dates: start: 20190325, end: 20190402
  13. PENTOTHAL [Suspect]
     Active Substance: THIOPENTAL SODIUM
     Indication: PRODUCT USED FOR UNKNOWN INDICATION
     Dosage: UNK
     Route: 042
     Dates: start: 20190325, end: 20190402
  14. MIDAZOLAM HYDROCHLORIDE. [Suspect]
     Active Substance: MIDAZOLAM HYDROCHLORIDE
     Indication: PRODUCT USED FOR UNKNOWN INDICATION
     Dosage: UNK
     Route: 042
     Dates: start: 20190325, end: 20190402
  15. OLIMEL [Interacting]
     Active Substance: AMINO ACIDS\DEXTROSE\SOYBEAN OIL
     Indication: COMA
     Dosage: CONTINU INFUUS TPN OP HOOFDLEIDING. ALLE INTERMITTENDE MEDICATIE WERD VIA Y-LEIDING
     Route: 042
     Dates: start: 20190323, end: 20190402
  16. PANTOMED                           /01263204/ [Concomitant]
     Active Substance: PANTOPRAZOLE SODIUM
     Indication: GASTROINTESTINAL DISORDER PROPHYLAXIS
     Dosage: 40 MILLIGRAM, QD
     Route: 042
     Dates: start: 20190323
  17. OLIMEL [Interacting]
     Active Substance: AMINO ACIDS\DEXTROSE\SOYBEAN OIL
     Indication: PARENTERAL NUTRITION
     Dosage: UNK UNK, QD
  18. AUGMENTIN [Interacting]
     Active Substance: AMOXICILLIN\CLAVULANATE POTASSIUM
     Indication: INFECTION
     Dosage: ZIE EERDER.
     Route: 042
     Dates: start: 20190325, end: 20190402
  19. POTASSIUM PHOSPHATE                /00493501/ [Suspect]
     Active Substance: POTASSIUM PHOSPHATE, DIBASIC
     Indication: PRODUCT USED FOR UNKNOWN INDICATION
     Dosage: 1 MEQ / ML - 20 ML: 1 TO 2X / DAY, OFTEN INTERSPERSED WITH KCL DURING TREATMENT
     Route: 042
     Dates: start: 20190328, end: 20190402
  20. OLIMEL [Interacting]
     Active Substance: AMINO ACIDS\DEXTROSE\SOYBEAN OIL
     Indication: COMA
     Dosage: CONTINU INFUUS TPN OP HOOFDLEIDING. ALLE INTERMITTENDE MEDICATIE WERD VIA Y-LEIDING
     Route: 042
     Dates: start: 20190323, end: 20190402
  21. POTASSIUM CHLORIDE. [Suspect]
     Active Substance: POTASSIUM CHLORIDE
     Indication: PRODUCT USED FOR UNKNOWN INDICATION
     Dosage: ALTERNATED WITH KPO4
     Route: 042
     Dates: start: 20190323, end: 20190402

REACTIONS (4)
  - Drug interaction [Fatal]
  - Superior vena cava occlusion [Fatal]
  - Drug chemical incompatibility [Fatal]
  - Catheter site thrombosis [Fatal]

NARRATIVE: CASE EVENT DATE: 20190402
